FAERS Safety Report 4464626-1 (Version None)
Quarter: 2004Q3

REPORT INFORMATION
  Report Type: 
  Country: None (occurrence: None)
  Receive Date: 20040928
  Receipt Date: 20040909
  Transmission Date: 20050211
  Serious: Yes (Other)
  Sender: FDA-Public Use
  Company Number: B0344805A

PATIENT
  Age: 30 Year
  Sex: Female

DRUGS (1)
  1. LITHIUM SALT  (GENERIC) (LITHIUM SALT) [Suspect]
     Indication: BIPOLAR DISORDER

REACTIONS (3)
  - AUTOIMMUNE THYROIDITIS [None]
  - DRUG LEVEL DECREASED [None]
  - MANIA [None]
